FAERS Safety Report 6358097-8 (Version None)
Quarter: 2009Q3

REPORT INFORMATION
  Report Type: 
  Country: None (occurrence: None)
  Receive Date: 20090916
  Receipt Date: 20090909
  Transmission Date: 20100115
  Serious: Yes (Hospitalization, Other)
  Sender: FDA-Public Use
  Company Number: US-ABBOTT-09P-163-0590144-00

PATIENT
  Sex: Male

DRUGS (6)
  1. HUMIRA [Suspect]
     Indication: PSORIATIC ARTHROPATHY
     Dates: start: 20071101, end: 20090729
  2. OMEPRAZOLE [Concomitant]
     Indication: GASTROOESOPHAGEAL REFLUX DISEASE
  3. FLONASE [Concomitant]
     Indication: HYPERSENSITIVITY
  4. DIFLUNISAL [Concomitant]
     Indication: HYPERSENSITIVITY
  5. AMBIEN [Concomitant]
     Indication: INSOMNIA
  6. LEVITRA [Concomitant]
     Indication: ERECTILE DYSFUNCTION

REACTIONS (2)
  - BACTERIAL INFECTION [None]
  - CELLULITIS [None]
